FAERS Safety Report 4824550-9 (Version None)
Quarter: 2005Q4

REPORT INFORMATION
  Report Type: 
  Country: None (occurrence: None)
  Receive Date: 20051108
  Receipt Date: 20051025
  Transmission Date: 20060501
  Serious: Yes (Death)
  Sender: FDA-Public Use
  Company Number: TNZFR200500102

PATIENT
  Age: 69 Year
  Sex: Male
  Weight: 77 kg

DRUGS (4)
  1. INNOHEP [Suspect]
     Indication: PULMONARY EMBOLISM
     Dosage: 14000 IU (14000 IU, ONCE DAILY), SUBCUTANEOUS
     Route: 058
     Dates: start: 20050824, end: 20050828
  2. PREVISCAN (FLUINDIONE) (20 MILLIGRAM, TABLETS) [Suspect]
     Indication: PULMONARY EMBOLISM
     Dosage: 5 MG ON ODD DATES AND 10 MG ON EVEN DATES, ORAL
     Route: 048
     Dates: start: 20050824, end: 20050913
  3. DUPHALAC [Concomitant]
  4. PARACETAMOL/CODEINE (GALENIC/PARACETAMOL/CODEINE/) [Concomitant]

REACTIONS (10)
  - BACK PAIN [None]
  - BLOOD LACTATE DEHYDROGENASE INCREASED [None]
  - CARDIO-RESPIRATORY ARREST [None]
  - DISEASE RECURRENCE [None]
  - HEART RATE INCREASED [None]
  - HYPERHIDROSIS [None]
  - METASTASES TO BONE [None]
  - METASTASES TO BONE MARROW [None]
  - PULMONARY EMBOLISM [None]
  - PYREXIA [None]
